FAERS Safety Report 16516234 (Version 1)
Quarter: 2019Q3

REPORT INFORMATION
  Report Type: Spontaneous
  Country: US (occurrence: US)
  Receive Date: 20190702
  Receipt Date: 20190702
  Transmission Date: 20191004
  Serious: No
  Sender: FDA-Public Use
  Company Number: None

PATIENT
  Age: 56 Year
  Sex: Female
  Weight: 88.65 kg

DRUGS (6)
  1. LEVORPHANOL [Suspect]
     Active Substance: LEVORPHANOL
     Indication: FIBROMYALGIA
     Route: 048
     Dates: start: 20190701, end: 20190702
  2. TRAZODONE [Concomitant]
     Active Substance: TRAZODONE HYDROCHLORIDE
  3. LEVOTHYROXINE. [Concomitant]
     Active Substance: LEVOTHYROXINE
  4. PROPRANOLOL [Concomitant]
     Active Substance: PROPRANOLOL HYDROCHLORIDE
  5. PRAZOSIN. [Concomitant]
     Active Substance: PRAZOSIN
  6. LEVORPHANOL [Suspect]
     Active Substance: LEVORPHANOL
     Indication: PAIN
     Route: 048
     Dates: start: 20190701, end: 20190702

REACTIONS (2)
  - Feeling abnormal [None]
  - Dyspnoea [None]

NARRATIVE: CASE EVENT DATE: 20190702
